FAERS Safety Report 5373417-9 (Version None)
Quarter: 2007Q2

REPORT INFORMATION
  Report Type: 
  Country: None (occurrence: None)
  Receive Date: 20070626
  Receipt Date: 20070626
  Transmission Date: 20071010
  Serious: Yes (Hospitalization)
  Sender: FDA-Public Use
  Company Number: None

PATIENT
  Sex: Female
  Weight: 88 kg

DRUGS (1)
  1. TRISENOX [Suspect]
     Indication: ILL-DEFINED DISORDER
     Dosage: 12.45 MG 5X/WEEK FOR 5 WKS IV
     Route: 042
     Dates: start: 20070529, end: 20070614

REACTIONS (4)
  - CHILLS [None]
  - DYSPNOEA [None]
  - INFUSION RELATED REACTION [None]
  - PYREXIA [None]
